FAERS Safety Report 9789616 (Version 2)
Quarter: 2014Q1

REPORT INFORMATION
  Report Type: Spontaneous
  Country: FR (occurrence: FR)
  Receive Date: 20131231
  Receipt Date: 20140331
  Transmission Date: 20141002
  Serious: Yes (Life-Threatening)
  Sender: FDA-Public Use
  Company Number: FR-BRISTOL-MYERS SQUIBB COMPANY-19932425

PATIENT
  Age: 20 Year
  Sex: Female

DRUGS (10)
  1. ABILIFY [Suspect]
     Dates: start: 20131203
  2. PARACETAMOL [Suspect]
     Dates: start: 20131203
  3. ZOLPIDEM [Suspect]
     Dates: start: 20131203
  4. PAROXETINE [Suspect]
     Dates: start: 20131203
  5. HEPT-A-MYL [Suspect]
     Dates: start: 20131203
  6. CYMBALTA [Suspect]
     Dates: start: 20131203
  7. LAMOTRIGINE [Suspect]
     Dates: start: 20131203
  8. ESCITALOPRAM [Suspect]
     Dates: start: 20131203
  9. AGOMELATINE [Suspect]
     Dates: start: 20131203
  10. AVLOCARDYL [Suspect]
     Dates: start: 20131203

REACTIONS (4)
  - Confusional state [Recovered/Resolved]
  - Liver injury [Recovered/Resolved]
  - Rhabdomyolysis [Recovered/Resolved]
  - Mydriasis [Recovered/Resolved]
